FAERS Safety Report 25608577 (Version 3)
Quarter: 2025Q3

REPORT INFORMATION
  Report Type: Spontaneous
  Country: JP (occurrence: JP)
  Receive Date: 20250726
  Receipt Date: 20250906
  Transmission Date: 20251021
  Serious: Yes (Death, Life-Threatening, Other)
  Sender: ACCORD
  Company Number: JP-MLMSERVICE-20250710-PI572689-00117-1

PATIENT
  Age: 50 Year
  Sex: Male

DRUGS (5)
  1. ETOPOSIDE [Suspect]
     Active Substance: ETOPOSIDE
     Indication: Lymphoma
  2. METHOTREXATE [Suspect]
     Active Substance: METHOTREXATE
     Indication: Lymphoma
  3. DEXAMETHASONE [Suspect]
     Active Substance: DEXAMETHASONE
     Indication: Lymphoma
  4. IFOSFAMIDE [Suspect]
     Active Substance: IFOSFAMIDE
     Indication: Lymphoma
  5. ASPARAGINASE [Suspect]
     Active Substance: ASPARAGINASE
     Indication: Lymphoma

REACTIONS (8)
  - Tracheobronchitis [Fatal]
  - Bronchopulmonary aspergillosis [Fatal]
  - Acute respiratory distress syndrome [Fatal]
  - Febrile neutropenia [Recovered/Resolved]
  - Hypercapnia [Fatal]
  - Diffuse alveolar damage [Fatal]
  - Staphylococcal infection [Unknown]
  - Respiratory acidosis [Fatal]
